FAERS Safety Report 18905042 (Version 1)
Quarter: 2021Q1

REPORT INFORMATION
  Report Type: Spontaneous
  Country: US (occurrence: US)
  Receive Date: 20210217
  Receipt Date: 20210217
  Transmission Date: 20210420
  Serious: No
  Sender: FDA-Public Use
  Company Number: US-BAYER-2021-059353

PATIENT
  Sex: Female

DRUGS (8)
  1. ALEVE [Suspect]
     Active Substance: NAPROXEN SODIUM
     Indication: PAIN IN EXTREMITY
  2. ADVIL [Suspect]
     Active Substance: IBUPROFEN
     Indication: FEELING HOT
     Dosage: UNK
     Dates: start: 202101
  3. ADVIL [Suspect]
     Active Substance: IBUPROFEN
     Indication: TREMOR
  4. ALEVE [Suspect]
     Active Substance: NAPROXEN SODIUM
     Indication: TREMOR
  5. ADVIL [Suspect]
     Active Substance: IBUPROFEN
     Indication: PAIN IN EXTREMITY
  6. ALEVE [Suspect]
     Active Substance: NAPROXEN SODIUM
     Indication: PERIPHERAL SWELLING
  7. ADVIL [Suspect]
     Active Substance: IBUPROFEN
     Indication: PERIPHERAL SWELLING
  8. ALEVE [Suspect]
     Active Substance: NAPROXEN SODIUM
     Indication: FEELING HOT
     Dosage: UNK
     Dates: start: 202101

REACTIONS (1)
  - Drug ineffective for unapproved indication [Unknown]

NARRATIVE: CASE EVENT DATE: 202101
